FAERS Safety Report 23698715 (Version 1)
Quarter: 2024Q2

REPORT INFORMATION
  Report Type: Spontaneous
  Country: US (occurrence: None)
  Receive Date: 20240402
  Receipt Date: 20240402
  Transmission Date: 20240715
  Serious: Yes (Hospitalization)
  Sender: FDA-Public Use
  Company Number: None

PATIENT
  Age: 44 Year
  Sex: Male

DRUGS (1)
  1. TACROLIMUS [Suspect]
     Active Substance: TACROLIMUS
     Dosage: 10 MG TWICE  A DAY ORAL?
     Route: 048

REACTIONS (1)
  - Prophylaxis against transplant rejection [None]

NARRATIVE: CASE EVENT DATE: 20240402
